FAERS Safety Report 17127505 (Version 1)
Quarter: 2019Q4

REPORT INFORMATION
  Report Type: Spontaneous
  Country: FR (occurrence: FR)
  Receive Date: 20191209
  Receipt Date: 20191209
  Transmission Date: 20200122
  Serious: Yes (Hospitalization, Other)
  Sender: FDA-Public Use
  Company Number: FR-GLAXOSMITHKLINE-FR2019219876

PATIENT
  Age: 73 Year
  Sex: Male

DRUGS (1)
  1. ZOVIRAX [Suspect]
     Active Substance: ACYCLOVIR
     Indication: MENINGOENCEPHALITIS VIRAL
     Dosage: 750 MG, QOD
     Route: 042
     Dates: start: 20190911, end: 20191001

REACTIONS (2)
  - Neutropenia [Not Recovered/Not Resolved]
  - Haemolytic anaemia [Not Recovered/Not Resolved]

NARRATIVE: CASE EVENT DATE: 20190916
